FAERS Safety Report 7055707-7 (Version None)
Quarter: 2010Q4

REPORT INFORMATION
  Report Type: 
  Country: None (occurrence: None)
  Receive Date: 20101021
  Receipt Date: 20101011
  Transmission Date: 20110411
  Serious: Yes (Other)
  Sender: FDA-Public Use
  Company Number: DK-JNJFOC-20101003100

PATIENT
  Sex: Female

DRUGS (2)
  1. REMICADE [Suspect]
     Indication: SPONDYLOARTHROPATHY
     Route: 042
  2. REMICADE [Suspect]
     Route: 042

REACTIONS (3)
  - DYSPNOEA [None]
  - ERYTHEMA [None]
  - FEELING HOT [None]
